FAERS Safety Report 9208655 (Version 1)
Quarter: 2013Q2

REPORT INFORMATION
  Report Type: Spontaneous
  Country: US (occurrence: None)
  Receive Date: 20130402
  Receipt Date: 20130402
  Transmission Date: 20140414
  Serious: No
  Sender: FDA-Public Use
  Company Number: None

PATIENT
  Age: 82 Year
  Sex: Female
  Weight: 58.97 kg

DRUGS (1)
  1. GABAPENTIN [Suspect]
     Indication: PAIN PROPHYLAXIS
     Dates: start: 20130114, end: 20130127

REACTIONS (9)
  - Dizziness postural [None]
  - Nausea [None]
  - Abdominal discomfort [None]
  - Chest pain [None]
  - Confusional state [None]
  - Heart rate irregular [None]
  - Hypoaesthesia [None]
  - Headache [None]
  - Disturbance in attention [None]
